FAERS Safety Report 7374813-0 (Version None)
Quarter: 2011Q1

REPORT INFORMATION
  Report Type: 
  Country: None (occurrence: None)
  Receive Date: 20110325
  Receipt Date: 20110124
  Transmission Date: 20110831
  Serious: No
  Sender: FDA-Public Use
  Company Number: US-MYLANLABS-2010S1023526

PATIENT
  Age: 65 Year
  Sex: Female
  Weight: 43.09 kg

DRUGS (3)
  1. VICODIN [Concomitant]
     Indication: BREAKTHROUGH PAIN
  2. FENTANYL-100 [Suspect]
     Indication: BACK PAIN
     Dosage: CHANGED Q 72 HOURS
     Route: 062
     Dates: start: 20101001
  3. AMLODIPINE BESYLATE AND BENAZEPRIL HCL [Concomitant]
     Indication: BLOOD PRESSURE
     Route: 048

REACTIONS (3)
  - PAIN [None]
  - DRUG INEFFECTIVE [None]
  - DRUG WITHDRAWAL SYNDROME [None]
